FAERS Safety Report 9591690 (Version 1)
Quarter: 2013Q4

REPORT INFORMATION
  Report Type: Spontaneous
  Country: US (occurrence: US)
  Receive Date: 20131004
  Receipt Date: 20131004
  Transmission Date: 20140711
  Serious: No
  Sender: FDA-Public Use
  Company Number: US-009507513-1309USA004294

PATIENT
  Sex: Female

DRUGS (1)
  1. SINEMET [Suspect]
     Indication: PARKINSON^S DISEASE
     Dosage: CONCENTRATION:25/100 MG, 1.5 TABLETS, 7 TIMES A DAY
     Route: 048
     Dates: start: 2007

REACTIONS (3)
  - Drug effect incomplete [Unknown]
  - Overdose [Unknown]
  - Wrong technique in drug usage process [Unknown]
